FAERS Safety Report 25774806 (Version 1)
Quarter: 2025Q3

REPORT INFORMATION
  Report Type: Spontaneous
  Country: US (occurrence: US)
  Receive Date: 20250908
  Receipt Date: 20250908
  Transmission Date: 20251020
  Serious: No
  Sender: CIPLA
  Company Number: US-CIPLA LTD.-2025US01835

PATIENT

DRUGS (15)
  1. DICLOFENAC [Suspect]
     Active Substance: DICLOFENAC
     Indication: Arthralgia
     Dosage: 2 TO 3 GRAMS TID
     Route: 061
     Dates: start: 20250205
  2. DICLOFENAC [Suspect]
     Active Substance: DICLOFENAC
     Indication: Back pain
  3. LANTUS [Concomitant]
     Active Substance: INSULIN GLARGINE
     Indication: Diabetes mellitus
     Dosage: 100 MILLIGRAM, BID (15 UNITS IN MORNING AND 15 UNITS AT NIGHT), STRENGTH: 100 UNSPECIFIED UNITS (USI
     Route: 065
  4. METFORMIN [Concomitant]
     Active Substance: METFORMIN HYDROCHLORIDE
     Indication: Diabetes mellitus
     Dosage: 850 MILLIGRAM, QD (USING FOR LONG TIME)
     Route: 065
  5. FISH OIL [Concomitant]
     Active Substance: FISH OIL
     Indication: Product used for unknown indication
     Dosage: 1000 MILLIGRAM, QD (YEARS, DOESN^T KNOW EXACT DATE)
     Route: 065
  6. NAPROXEN [Concomitant]
     Active Substance: NAPROXEN
     Indication: Back pain
     Dosage: 250 MILLIGRAM, QD (IT SAYS TO TAKE UP TO TWO A DAY)
     Route: 065
     Dates: start: 202408
  7. GABAPENTIN [Concomitant]
     Active Substance: GABAPENTIN
     Indication: Neuropathy peripheral
     Dosage: 300 MILLIGRAM, QD (FOREVER FOR NERVE PAIN)
     Route: 065
  8. TAMSULOSIN [Concomitant]
     Active Substance: TAMSULOSIN
     Indication: Dysuria
     Dosage: 0.4 MILLIGRAM, QD (ONCE AT NIGHT WHEN PATIENT GOES TO BED)
     Route: 065
  9. ASCORBIC ACID [Concomitant]
     Active Substance: ASCORBIC ACID
     Indication: Product used for unknown indication
     Dosage: 500 MILLIGRAM, QD
     Route: 065
  10. TIZANIDINE HYDROCHLORIDE [Concomitant]
     Active Substance: TIZANIDINE HYDROCHLORIDE
     Indication: Product used for unknown indication
     Dosage: 2 MILLIGRAM, QD (HALF TABLET ONCE A DAY)
     Route: 065
  11. EMPAGLIFLOZIN [Concomitant]
     Active Substance: EMPAGLIFLOZIN
     Indication: Diabetes mellitus
     Dosage: 25 MILLIGRAM, QD (HALF TABLET A DAY), STARTED PROBABLY 2 MONTHS AGO
     Route: 065
  12. LISINOPRIL [Concomitant]
     Active Substance: LISINOPRIL
     Indication: Product used for unknown indication
     Dosage: 40 MILLIGRAM, QD (YEARS, DOESN^T KNOW HOW MANY)
     Route: 065
  13. ASPIRIN [Concomitant]
     Active Substance: ASPIRIN
     Indication: Anticoagulant therapy
     Route: 065
  14. VITAMIN D3 [Concomitant]
     Active Substance: CHOLECALCIFEROL
     Indication: Product used for unknown indication
     Dosage: 50MG / 2000 IU, QD
     Route: 065
  15. CINNAMON [CINNAMOMUM VERUM] [Concomitant]
     Indication: Diabetes mellitus
     Route: 065

REACTIONS (1)
  - Off label use [Unknown]

NARRATIVE: CASE EVENT DATE: 20250205
